FAERS Safety Report 7361920-1 (Version None)
Quarter: 2011Q1

REPORT INFORMATION
  Report Type: 
  Country: None (occurrence: None)
  Receive Date: 20110315
  Receipt Date: 20110315
  Transmission Date: 20110831
  Serious: Yes (Other)
  Sender: FDA-Public Use
  Company Number: None

PATIENT
  Age: 26 Year
  Sex: Female
  Weight: 80 kg

DRUGS (1)
  1. KETALAR [Suspect]
     Indication: DELIVERY
     Dates: start: 19920917, end: 19920917

REACTIONS (7)
  - DRUG EXPOSURE DURING PREGNANCY [None]
  - PSYCHOTIC DISORDER [None]
  - ABNORMAL BEHAVIOUR [None]
  - MATERNAL DRUGS AFFECTING FOETUS [None]
  - AMNESIA [None]
  - MENTAL DISORDER [None]
  - MAJOR DEPRESSION [None]
